FAERS Safety Report 8151992 (Version 2)
Quarter: 2013Q2

REPORT INFORMATION
  Report Type: Spontaneous
  Country: US (occurrence: US)
  Receive Date: 20110922
  Receipt Date: 20130517
  Transmission Date: 20140414
  Serious: Yes (Hospitalization, Other)
  Sender: FDA-Public Use
  Company Number: US-ASTRAZENECA-2011SE12562

PATIENT
  Age: 35 Year
  Sex: Female

DRUGS (11)
  1. SEROQUEL [Suspect]
     Route: 048
  2. SEROQUEL [Suspect]
     Route: 048
     Dates: start: 20080324
  3. VISTARIL [Concomitant]
     Dosage: 100 MG FOUR TIMES DAY FOR FIVE MORE DAYS
  4. LITHIUM CARBONATE [Concomitant]
     Dosage: 300 MG ONE IN THE MORNING AND ONE AT BEDTIME
  5. THORAZINE [Concomitant]
  6. ZOLOFT [Concomitant]
  7. WELLBUTRIN [Concomitant]
  8. CAMPROL [Concomitant]
  9. LITHOBID [Concomitant]
     Indication: ATTENTION DEFICIT/HYPERACTIVITY DISORDER
  10. METHADONE [Concomitant]
     Indication: SCOLIOSIS
  11. VICODIN [Concomitant]
     Indication: SCOLIOSIS

REACTIONS (3)
  - Pancreatitis [Unknown]
  - Diabetic coma [Unknown]
  - Type 2 diabetes mellitus [Unknown]
